FAERS Safety Report 24716377 (Version 1)
Quarter: 2024Q4

REPORT INFORMATION
  Report Type: Spontaneous
  Country: GB (occurrence: GB)
  Receive Date: 20241210
  Receipt Date: 20241210
  Transmission Date: 20250115
  Serious: Yes (Other)
  Sender: GLAXOSMITHKLINE
  Company Number: GB-GSKCCFEMEA-Case-02129579_AE-91129

PATIENT

DRUGS (3)
  1. ZEJULA [Suspect]
     Active Substance: NIRAPARIB
     Indication: Product used for unknown indication
     Dosage: 100 MG, FOR CYCLE 1-3
     Dates: start: 202406
  2. ZEJULA [Suspect]
     Active Substance: NIRAPARIB
     Dosage: 200 MG, CYCLE 4
  3. ZEJULA [Suspect]
     Active Substance: NIRAPARIB
     Dosage: UNK, CYCLE 6

REACTIONS (1)
  - Hypothyroidism [Unknown]
